FAERS Safety Report 16866509 (Version 1)
Quarter: 2019Q3

REPORT INFORMATION
  Report Type: Spontaneous
  Country: US (occurrence: US)
  Receive Date: 20190930
  Receipt Date: 20190930
  Transmission Date: 20191005
  Serious: No
  Sender: FDA-Public Use
  Company Number: US-ALLERGAN-1934691US

PATIENT
  Age: 10 Year
  Sex: Male

DRUGS (4)
  1. VRAYLAR [Suspect]
     Active Substance: CARIPRAZINE
     Indication: BIPOLAR DISORDER
     Dosage: 1.5 MG
     Route: 065
  2. VRAYLAR [Suspect]
     Active Substance: CARIPRAZINE
     Indication: ATTENTION DEFICIT/HYPERACTIVITY DISORDER
  3. VRAYLAR [Suspect]
     Active Substance: CARIPRAZINE
     Indication: DISRUPTIVE MOOD DYSREGULATION DISORDER
  4. VRAYLAR [Suspect]
     Active Substance: CARIPRAZINE
     Indication: AUTISM SPECTRUM DISORDER

REACTIONS (1)
  - Off label use [Unknown]
